FAERS Safety Report 16471394 (Version 8)
Quarter: 2021Q1

REPORT INFORMATION
  Report Type: Report from Study
  Country: DE (occurrence: DE)
  Receive Date: 20190624
  Receipt Date: 20210320
  Transmission Date: 20210419
  Serious: Yes (Hospitalization)
  Sender: FDA-Public Use
  Company Number: DE-SHIRE-DE201919958

PATIENT
  Age: 50 Year
  Sex: Male
  Weight: 85 kg

DRUGS (54)
  1. TEDUGLUTIDE [Suspect]
     Active Substance: TEDUGLUTIDE
     Dosage: 2.13 MILLIGRAM, 1X/DAY:QD,TED DOSES PER WEEK 7, (DAILY DOSE 0.03 MG/KG)
     Route: 065
     Dates: start: 20190311
  2. TEDUGLUTIDE [Suspect]
     Active Substance: TEDUGLUTIDE
     Dosage: 2 MILLIGRAM
     Route: 065
     Dates: start: 201908
  3. TEDUGLUTIDE [Suspect]
     Active Substance: TEDUGLUTIDE
     Dosage: 3.8 MILLIGRAM, 1X/DAY:QD
     Route: 065
     Dates: start: 201904, end: 20190822
  4. TEDUGLUTIDE [Suspect]
     Active Substance: TEDUGLUTIDE
     Dosage: 3.8 MILLIGRAM, 1X/DAY:QD
     Route: 065
     Dates: start: 20190823, end: 20190829
  5. TEDUGLUTIDE [Suspect]
     Active Substance: TEDUGLUTIDE
     Dosage: 2 MILLIGRAM, 1X/DAY:QD
     Route: 065
     Dates: start: 20190830, end: 20191014
  6. TEDUGLUTIDE [Suspect]
     Active Substance: TEDUGLUTIDE
     Dosage: 3.2 MILLIGRAM, 1X/DAY:QD
     Route: 065
     Dates: start: 20200218
  7. TEDUGLUTIDE [Suspect]
     Active Substance: TEDUGLUTIDE
     Indication: SHORT-BOWEL SYNDROME
     Dosage: 4.25 MILLIGRAM, 1X/DAY:QD, TED DOSES PER WEEK 7 (DAILY DOSE 0.05 MG/KG)
     Route: 065
     Dates: start: 20190111, end: 20190310
  8. TEDUGLUTIDE [Suspect]
     Active Substance: TEDUGLUTIDE
     Dosage: 3.8 MILLIGRAM, 1X/DAY:QD
     Route: 065
     Dates: start: 20190823, end: 20190829
  9. TEDUGLUTIDE [Suspect]
     Active Substance: TEDUGLUTIDE
     Dosage: 2.5 MILLIGRAM, 1X/DAY:QD
     Route: 065
     Dates: start: 20191015, end: 20191027
  10. TEDUGLUTIDE [Suspect]
     Active Substance: TEDUGLUTIDE
     Dosage: 3.2 MILLIGRAM, 1X/DAY:QD
     Route: 065
     Dates: start: 20200810
  11. TEDUGLUTIDE [Suspect]
     Active Substance: TEDUGLUTIDE
     Dosage: 3.2 MILLIGRAM, 1X/DAY:QD
     Route: 065
     Dates: start: 20200810
  12. REMICADE [Concomitant]
     Active Substance: INFLIXIMAB
     Indication: CROHN^S DISEASE
  13. PROPOFOL. [Concomitant]
     Active Substance: PROPOFOL
     Indication: PRODUCT USED FOR UNKNOWN INDICATION
  14. TEDUGLUTIDE [Suspect]
     Active Substance: TEDUGLUTIDE
     Dosage: 4 MILLIGRAM, TED DAILY DOSE 0.05 MG KG, 7 TED DOSE PER WEEK
     Route: 065
     Dates: start: 20190311
  15. TEDUGLUTIDE [Suspect]
     Active Substance: TEDUGLUTIDE
     Dosage: 4 MILLIGRAM, TED DAILY DOSE 0.05 MG KG, 7 TED DOSE PER WEEK
     Route: 065
     Dates: start: 20190311
  16. TEDUGLUTIDE [Suspect]
     Active Substance: TEDUGLUTIDE
     Dosage: 3.8 MILLIGRAM, 1X/DAY:QD
     Route: 065
     Dates: start: 201904, end: 20190822
  17. TEDUGLUTIDE [Suspect]
     Active Substance: TEDUGLUTIDE
     Dosage: 3.8 MILLIGRAM, 1X/DAY:QD
     Route: 065
     Dates: start: 201904, end: 20190822
  18. TEDUGLUTIDE [Suspect]
     Active Substance: TEDUGLUTIDE
     Dosage: 3.8 MILLIGRAM, 1X/DAY:QD
     Route: 065
     Dates: start: 201904, end: 20190822
  19. TEDUGLUTIDE [Suspect]
     Active Substance: TEDUGLUTIDE
     Dosage: 2.5 MILLIGRAM, 1X/DAY:QD
     Route: 065
     Dates: start: 20191015, end: 20191027
  20. TEDUGLUTIDE [Suspect]
     Active Substance: TEDUGLUTIDE
     Dosage: 3.5 MILLIGRAM, 1X/DAY:QD
     Route: 065
     Dates: start: 20191028, end: 20200214
  21. TEDUGLUTIDE [Suspect]
     Active Substance: TEDUGLUTIDE
     Dosage: 3.2 MILLIGRAM, 1X/DAY:QD
     Route: 065
     Dates: start: 20200810
  22. BUSCOPAN [Concomitant]
     Active Substance: BUTYLSCOPOLAMINE BROMIDE
     Indication: PRODUCT USED FOR UNKNOWN INDICATION
  23. TEDUGLUTIDE [Suspect]
     Active Substance: TEDUGLUTIDE
     Dosage: 2.13 MILLIGRAM, 1X/DAY:QD,TED DOSES PER WEEK 7, (DAILY DOSE 0.03 MG/KG)
     Route: 065
     Dates: start: 20190311
  24. TEDUGLUTIDE [Suspect]
     Active Substance: TEDUGLUTIDE
     Dosage: 4 MILLIGRAM, TED DAILY DOSE 0.05 MG KG, 7 TED DOSE PER WEEK
     Route: 065
     Dates: start: 20190311
  25. TEDUGLUTIDE [Suspect]
     Active Substance: TEDUGLUTIDE
     Dosage: 3.8 MILLIGRAM, 1X/DAY:QD
     Route: 065
     Dates: start: 20190823, end: 20190829
  26. TEDUGLUTIDE [Suspect]
     Active Substance: TEDUGLUTIDE
     Dosage: 3.8 MILLIGRAM, 1X/DAY:QD
     Route: 065
     Dates: start: 20190823, end: 20190829
  27. TEDUGLUTIDE [Suspect]
     Active Substance: TEDUGLUTIDE
     Dosage: 2.5 MILLIGRAM, 1X/DAY:QD
     Route: 065
     Dates: start: 20191015, end: 20191027
  28. IBUPROFEN. [Concomitant]
     Active Substance: IBUPROFEN
     Indication: ARTHRALGIA
  29. TEDUGLUTIDE [Suspect]
     Active Substance: TEDUGLUTIDE
     Dosage: 3.2 MILLIGRAM, 1X/DAY:QD
     Route: 065
     Dates: start: 20200810
  30. PANTOZOL [Concomitant]
     Active Substance: PANTOPRAZOLE SODIUM
     Indication: PRODUCT USED FOR UNKNOWN INDICATION
  31. DECORTIN [Concomitant]
     Active Substance: PREDNISONE
     Indication: ARTHRALGIA
  32. TEDUGLUTIDE [Suspect]
     Active Substance: TEDUGLUTIDE
     Indication: SHORT-BOWEL SYNDROME
     Dosage: 4.25 MILLIGRAM, 1X/DAY:QD, TED DOSES PER WEEK 7 (DAILY DOSE 0.05 MG/KG)
     Route: 065
     Dates: start: 20190111, end: 20190310
  33. TEDUGLUTIDE [Suspect]
     Active Substance: TEDUGLUTIDE
     Indication: SHORT-BOWEL SYNDROME
     Dosage: 4.25 MILLIGRAM, 1X/DAY:QD, TED DOSES PER WEEK 7 (DAILY DOSE 0.05 MG/KG)
     Route: 065
     Dates: start: 20190111, end: 20190310
  34. TEDUGLUTIDE [Suspect]
     Active Substance: TEDUGLUTIDE
     Dosage: 2 MILLIGRAM
     Route: 065
     Dates: start: 201908
  35. TEDUGLUTIDE [Suspect]
     Active Substance: TEDUGLUTIDE
     Dosage: 4 MILLIGRAM, TED DAILY DOSE 0.05 MG KG, 7 TED DOSE PER WEEK
     Route: 065
     Dates: start: 20190311
  36. TEDUGLUTIDE [Suspect]
     Active Substance: TEDUGLUTIDE
     Dosage: 2 MILLIGRAM, 1X/DAY:QD
     Route: 065
     Dates: start: 20190830, end: 20191014
  37. TEDUGLUTIDE [Suspect]
     Active Substance: TEDUGLUTIDE
     Dosage: 2.5 MILLIGRAM, 1X/DAY:QD
     Route: 065
     Dates: start: 20191015, end: 20191027
  38. TEDUGLUTIDE [Suspect]
     Active Substance: TEDUGLUTIDE
     Dosage: 3.2 MILLIGRAM, 1X/DAY:QD
     Route: 065
     Dates: start: 20200218
  39. TEDUGLUTIDE [Suspect]
     Active Substance: TEDUGLUTIDE
     Indication: SHORT-BOWEL SYNDROME
     Dosage: 4.25 MILLIGRAM, 1X/DAY:QD, TED DOSES PER WEEK 7 (DAILY DOSE 0.05 MG/KG)
     Route: 065
     Dates: start: 20190111, end: 20190310
  40. TEDUGLUTIDE [Suspect]
     Active Substance: TEDUGLUTIDE
     Dosage: 2.13 MILLIGRAM, 1X/DAY:QD,TED DOSES PER WEEK 7, (DAILY DOSE 0.03 MG/KG)
     Route: 065
     Dates: start: 20190311
  41. TEDUGLUTIDE [Suspect]
     Active Substance: TEDUGLUTIDE
     Dosage: 2 MILLIGRAM
     Route: 065
     Dates: start: 201908
  42. TEDUGLUTIDE [Suspect]
     Active Substance: TEDUGLUTIDE
     Dosage: 2 MILLIGRAM, 1X/DAY:QD
     Route: 065
     Dates: start: 20190830, end: 20191014
  43. TEDUGLUTIDE [Suspect]
     Active Substance: TEDUGLUTIDE
     Dosage: 3.5 MILLIGRAM, 1X/DAY:QD
     Route: 065
     Dates: start: 20191028, end: 20200214
  44. TEDUGLUTIDE [Suspect]
     Active Substance: TEDUGLUTIDE
     Dosage: 3.2 MILLIGRAM, 1X/DAY:QD
     Route: 065
     Dates: start: 20200218
  45. ASPIRIN. [Concomitant]
     Active Substance: ASPIRIN
     Indication: PRODUCT USED FOR UNKNOWN INDICATION
  46. KALINOR?RETARD P [Concomitant]
     Indication: PRODUCT USED FOR UNKNOWN INDICATION
  47. TEDUGLUTIDE [Suspect]
     Active Substance: TEDUGLUTIDE
     Dosage: 2.13 MILLIGRAM, 1X/DAY:QD,TED DOSES PER WEEK 7, (DAILY DOSE 0.03 MG/KG)
     Route: 065
     Dates: start: 20190311
  48. TEDUGLUTIDE [Suspect]
     Active Substance: TEDUGLUTIDE
     Dosage: 2 MILLIGRAM
     Route: 065
     Dates: start: 201908
  49. TEDUGLUTIDE [Suspect]
     Active Substance: TEDUGLUTIDE
     Dosage: 2 MILLIGRAM, 1X/DAY:QD
     Route: 065
     Dates: start: 20190830, end: 20191014
  50. TEDUGLUTIDE [Suspect]
     Active Substance: TEDUGLUTIDE
     Dosage: 3.5 MILLIGRAM, 1X/DAY:QD
     Route: 065
     Dates: start: 20191028, end: 20200214
  51. TEDUGLUTIDE [Suspect]
     Active Substance: TEDUGLUTIDE
     Dosage: 3.5 MILLIGRAM, 1X/DAY:QD
     Route: 065
     Dates: start: 20191028, end: 20200214
  52. TEDUGLUTIDE [Suspect]
     Active Substance: TEDUGLUTIDE
     Dosage: 3.2 MILLIGRAM, 1X/DAY:QD
     Route: 065
     Dates: start: 20200218
  53. DORMICUM [MIDAZOLAM MALEATE] [Concomitant]
     Active Substance: MIDAZOLAM MALEATE
     Indication: PRODUCT USED FOR UNKNOWN INDICATION
  54. TPN [AMINO ACIDS NOS;CARBOHYDRATES NOS;MINERALS NOS;VITAMINS NOS] [Concomitant]
     Active Substance: AMINO ACIDS\CARBOHYDRATES\MINERALS\VITAMINS
     Indication: PRODUCT USED FOR UNKNOWN INDICATION

REACTIONS (7)
  - Transaminases increased [Not Recovered/Not Resolved]
  - Small intestinal obstruction [Not Recovered/Not Resolved]
  - Arthralgia [Recovered/Resolved]
  - Abdominal pain upper [Recovered/Resolved]
  - Nausea [Recovered/Resolved]
  - Ileostomy [Recovered/Resolved]
  - Weight decreased [Recovered/Resolved]

NARRATIVE: CASE EVENT DATE: 20190301
